FAERS Safety Report 24023496 (Version 4)
Quarter: 2024Q3

REPORT INFORMATION
  Report Type: Spontaneous
  Country: IN (occurrence: IN)
  Receive Date: 20240627
  Receipt Date: 20240710
  Transmission Date: 20241017
  Serious: No
  Sender: ROCHE
  Company Number: IN-ROCHE-3549418

PATIENT
  Age: 48 Year
  Sex: Female

DRUGS (2)
  1. VABYSMO [Suspect]
     Active Substance: FARICIMAB\FARICIMAB-SVOA
     Indication: Diabetic retinal oedema
     Dosage: ONGOING: YES
     Route: 050
     Dates: start: 20240309
  2. VABYSMO [Suspect]
     Active Substance: FARICIMAB\FARICIMAB-SVOA
     Dosage: NEXT INFUSION START DATE: 17-APR-2024; ONGOING: YES
     Route: 050
     Dates: start: 20240311

REACTIONS (2)
  - Off label use [Unknown]
  - No adverse event [Unknown]
